FAERS Safety Report 23173275 (Version 1)
Quarter: 2023Q4

REPORT INFORMATION
  Report Type: Spontaneous
  Country: JP (occurrence: JP)
  Receive Date: 20231111
  Receipt Date: 20231111
  Transmission Date: 20240109
  Serious: Yes (Death)
  Sender: FDA-Public Use
  Company Number: JP-JNJFOC-20231129608

PATIENT
  Age: 9 Decade
  Sex: Female

DRUGS (1)
  1. UPTRAVI [Suspect]
     Active Substance: SELEXIPAG
     Indication: Pulmonary hypertension
     Dosage: 10 MG X 2/DAY
     Route: 048
     Dates: end: 20230929

REACTIONS (1)
  - Pulmonary hypertension [Fatal]
